FAERS Safety Report 4296564-1 (Version None)
Quarter: 2004Q1

REPORT INFORMATION
  Report Type: 
  Country: None (occurrence: None)
  Receive Date: 20040211
  Receipt Date: 20031230
  Transmission Date: 20041129
  Serious: Yes (Hospitalization)
  Sender: FDA-Public Use
  Company Number: SUS1-2003-00546

PATIENT
  Age: 18 Year
  Sex: Female

DRUGS (2)
  1. ADDERALL XR 10 [Suspect]
     Dosage: 10 MG 1X/DAY:QD
  2. STRATTERA /USA/(TOMOXETINE HYDROCHLORIDE) [Concomitant]

REACTIONS (1)
  - PSYCHOTIC DISORDER [None]
